FAERS Safety Report 21783004 (Version 1)
Quarter: 2022Q4

REPORT INFORMATION
  Report Type: Spontaneous
  Country: IN (occurrence: IN)
  Receive Date: 20221227
  Receipt Date: 20221227
  Transmission Date: 20230113
  Serious: Yes (Hospitalization)
  Sender: FDA-Public Use
  Company Number: IN-MYLANLABS-2022M1144423

PATIENT
  Age: 60 Year
  Sex: Male

DRUGS (2)
  1. METHOTREXATE [Suspect]
     Active Substance: METHOTREXATE
     Indication: Erythrodermic psoriasis
     Dosage: 15 MILLIGRAM, QD
     Route: 048
  2. METHOTREXATE [Suspect]
     Active Substance: METHOTREXATE
     Dosage: UNK, RECHALLENGE WAS DONE
     Route: 065

REACTIONS (5)
  - Pancytopenia [Recovered/Resolved]
  - Mucocutaneous ulceration [Recovered/Resolved]
  - Toxicity to various agents [Recovered/Resolved]
  - Accidental exposure to product [Recovered/Resolved]
  - Treatment noncompliance [Recovered/Resolved]
